FAERS Safety Report 4556094-6 (Version None)
Quarter: 2005Q1

REPORT INFORMATION
  Report Type: 
  Country: None (occurrence: None)
  Receive Date: 20050119
  Receipt Date: 20050110
  Transmission Date: 20050727
  Serious: Yes (Hospitalization)
  Sender: FDA-Public Use
  Company Number: US-JNJFOC-20050103176

PATIENT
  Sex: Male
  Weight: 101.15 kg

DRUGS (9)
  1. REMICADE [Suspect]
     Indication: RHEUMATOID ARTHRITIS
     Route: 042
  2. METHOTREXATE [Concomitant]
  3. PREDNISONE [Concomitant]
  4. FOLIC ACID [Concomitant]
  5. LISINOPRIL [Concomitant]
  6. PERCOCET [Concomitant]
  7. PERCOCET [Concomitant]
  8. GLUCOSAMINE [Concomitant]
  9. ASPIRIN [Concomitant]

REACTIONS (4)
  - CHILLS [None]
  - HYPERHIDROSIS [None]
  - KNEE ARTHROPLASTY [None]
  - PYREXIA [None]
